FAERS Safety Report 7014334-8 (Version None)
Quarter: 2010Q3

REPORT INFORMATION
  Report Type: 
  Country: None (occurrence: None)
  Receive Date: 20100922
  Receipt Date: 20100916
  Transmission Date: 20110219
  Serious: Yes (Death, Hospitalization, Other)
  Sender: FDA-Public Use
  Company Number: USA/ USA/ 10/ 0014190

PATIENT
  Age: 66 Year
  Sex: Female

DRUGS (2)
  1. CIPRO [Suspect]
     Indication: UPPER RESPIRATORY TRACT INFECTION
     Dosage: 500 MG, 2 IN 1 D, PER ORAL; 500 MG, ONCE, PER ORAL
     Route: 048
     Dates: start: 20100101, end: 20100101
  2. CIPRO [Suspect]
     Indication: UPPER RESPIRATORY TRACT INFECTION
     Dosage: 500 MG, 2 IN 1 D, PER ORAL; 500 MG, ONCE, PER ORAL
     Route: 048
     Dates: start: 20100609, end: 20100618

REACTIONS (5)
  - CEREBROVASCULAR ACCIDENT [None]
  - DRUG INEFFECTIVE [None]
  - MOVEMENT DISORDER [None]
  - MYALGIA [None]
  - VOMITING [None]
